FAERS Safety Report 6768588-3 (Version None)
Quarter: 2010Q2

REPORT INFORMATION
  Report Type: 
  Country: None (occurrence: None)
  Receive Date: 20100614
  Receipt Date: 20100602
  Transmission Date: 20101027
  Serious: Yes (Hospitalization)
  Sender: FDA-Public Use
  Company Number: JP-PFIZER INC-2010069015

PATIENT
  Age: 81 Year
  Sex: Female
  Weight: 51.9 kg

DRUGS (4)
  1. SUNITINIB MALATE [Suspect]
     Indication: RENAL CELL CARCINOMA
     Dosage: 50 MG, 1X/DAY
     Route: 048
     Dates: start: 20080801, end: 20080811
  2. BLOPRESS [Concomitant]
     Dosage: 8 MG, 1X/DAY
     Route: 048
  3. NORVASC [Concomitant]
     Dosage: 5 MG, 1X/DAY
     Route: 048
  4. CONIEL [Concomitant]
     Dosage: 2 MG, 1X/DAY
     Route: 048

REACTIONS (6)
  - DISSEMINATED INTRAVASCULAR COAGULATION [None]
  - GINGIVITIS [None]
  - HEPATIC FUNCTION ABNORMAL [None]
  - PLEURAL EFFUSION [None]
  - STOMATITIS [None]
  - THROMBOCYTOPENIA [None]
